FAERS Safety Report 9387545 (Version 1)
Quarter: 2013Q3

REPORT INFORMATION
  Report Type: Spontaneous
  Country: US (occurrence: None)
  Receive Date: 20130702
  Receipt Date: 20130702
  Transmission Date: 20140515
  Serious: Yes (Death)
  Sender: FDA-Public Use
  Company Number: UTC-034536

PATIENT
  Age: 49 Year
  Sex: Female
  Weight: 63.6 kg

DRUGS (4)
  1. REMODULIN (10 MILLIGRAM/MILLILITERS, INJECTION FOR INFUSION) (TREPROSTINIL SODIUM) [Suspect]
     Indication: PULMONARY ARTERIAL HYPERTENSION
     Dosage: 132.48 UG/KG (0.092 UG/KG,L IN 1 MIN),INTRAVENOUS DRIP
     Route: 041
     Dates: start: 20101112
  2. COUMADIN(WARFARIN)(UNKNOWN) [Concomitant]
  3. REVATIO(SILDENAFIL CITRATE)(UNKNOWN) [Concomitant]
  4. TRACLEER(BOSENTAN)(UNKNOWN) [Concomitant]

REACTIONS (1)
  - Death [None]
